FAERS Safety Report 7653565 (Version 7)
Quarter: 2013Q3

REPORT INFORMATION
  Report Type: Report from Study
  Country: BR (occurrence: BR)
  Receive Date: 20101102
  Receipt Date: 20130816
  Transmission Date: 20140515
  Serious: Yes (Other)
  Sender: FDA-Public Use
  Company Number: BR-ROCHE-715203

PATIENT
  Age: 47 Year
  Sex: Female
  Weight: 57 kg

DRUGS (18)
  1. MABTHERA [Suspect]
     Indication: RHEUMATOID ARTHRITIS
     Route: 042
     Dates: start: 2008, end: 2008
  2. ACTEMRA [Suspect]
     Indication: RHEUMATOID ARTHRITIS
     Dosage: MOST RECENT DOSE RECEIVED ON DEC/2012
     Route: 042
  3. ACTEMRA [Suspect]
     Dosage: FORM INFUSION
     Route: 042
     Dates: start: 20100901, end: 20100927
  4. ACTEMRA [Suspect]
     Route: 042
     Dates: start: 20101025, end: 20101025
  5. ACTEMRA [Suspect]
     Route: 042
     Dates: start: 20101122, end: 20101122
  6. ACTEMRA [Suspect]
     Route: 042
     Dates: start: 20101222, end: 20101222
  7. ENBREL [Suspect]
     Indication: RHEUMATOID ARTHRITIS
     Route: 065
  8. ENBREL [Suspect]
     Dosage: RESTARTED
     Route: 065
  9. CHLOROQUINE [Concomitant]
  10. MELOXICAM [Concomitant]
     Route: 065
  11. CALCORT [Concomitant]
  12. ARAVA [Concomitant]
  13. FINASTERIDE [Concomitant]
     Indication: ALOPECIA
     Route: 065
  14. HYDROCHLOROTHIAZIDE [Concomitant]
     Route: 065
  15. TIBOLONE [Concomitant]
  16. PARACETAMOL [Concomitant]
  17. LOSARTAN [Concomitant]
  18. LIVIAL [Concomitant]

REACTIONS (11)
  - Arthropathy [Unknown]
  - Drug ineffective [Unknown]
  - Viral infection [Recovered/Resolved]
  - Arthritis [Recovering/Resolving]
  - Therapeutic response decreased [Recovering/Resolving]
  - Nasopharyngitis [Not Recovered/Not Resolved]
  - Sinusitis [Not Recovered/Not Resolved]
  - Arthralgia [Not Recovered/Not Resolved]
  - Drug ineffective [Unknown]
  - Fatigue [Recovering/Resolving]
  - Musculoskeletal stiffness [Recovered/Resolved]
